FAERS Safety Report 4434205-0 (Version None)
Quarter: 2004Q3

REPORT INFORMATION
  Report Type: 
  Country: None (occurrence: None)
  Receive Date: 20040825
  Receipt Date: 20040806
  Transmission Date: 20050211
  Serious: Yes (Hospitalization)
  Sender: FDA-Public Use
  Company Number: JP_040804003

PATIENT
  Age: 77 Year
  Sex: Male
  Weight: 42 kg

DRUGS (2)
  1. GEMZAR           (GEMCITABINE HYDROCHLORIDE) [Suspect]
     Indication: PANCREATIC CARCINOMA
     Dosage: 400 MG OTHER
     Route: 042
     Dates: start: 20040512, end: 20040715
  2. KYTRIL - FOR INFUSION (GRANISETRON HYDROCHLORIDE) [Concomitant]

REACTIONS (6)
  - DYSPNOEA [None]
  - INTERSTITIAL LUNG DISEASE [None]
  - MALAISE [None]
  - PCO2 DECREASED [None]
  - PO2 DECREASED [None]
  - PYREXIA [None]
